FAERS Safety Report 8789165 (Version 1)
Quarter: 2012Q4

REPORT INFORMATION
  Report Type: Spontaneous
  Country: US (occurrence: None)
  Receive Date: 20120910
  Receipt Date: 20120910
  Transmission Date: 20130627
  Serious: No
  Sender: FDA-Public Use
  Company Number: None

PATIENT
  Sex: Male
  Weight: 81.8 kg

DRUGS (1)
  1. VFEND [Suspect]
     Indication: PNEUMONIA ASPERGILLUS

REACTIONS (2)
  - Erythema [None]
  - Sensory disturbance [None]
